FAERS Safety Report 9823572 (Version 2)
Quarter: 2014Q1

REPORT INFORMATION
  Report Type: Spontaneous
  Country: CO (occurrence: CO)
  Receive Date: 20140116
  Receipt Date: 20140211
  Transmission Date: 20141002
  Serious: Yes (Death)
  Sender: FDA-Public Use
  Company Number: CO-BAXTER-2014BAX001640

PATIENT
  Age: 24 Year
  Sex: Female

DRUGS (3)
  1. KIOVIG [Suspect]
     Indication: ANTIPHOSPHOLIPID SYNDROME
     Route: 042
  2. KIOVIG [Suspect]
     Indication: OFF LABEL USE
  3. METHYLPREDNISOLONE [Suspect]
     Indication: ANTIPHOSPHOLIPID SYNDROME
     Route: 065

REACTIONS (1)
  - Multi-organ disorder [Fatal]
